FAERS Safety Report 6752487-7 (Version None)
Quarter: 2010Q2

REPORT INFORMATION
  Report Type: 
  Country: None (occurrence: None)
  Receive Date: 20100602
  Receipt Date: 20100521
  Transmission Date: 20101027
  Serious: No
  Sender: FDA-Public Use
  Company Number: US-B.I. PHARMACEUTICALS,INC./RIDGEFIELD-2010-BP-05690BP

PATIENT
  Sex: Female

DRUGS (9)
  1. SPIRIVA [Suspect]
     Indication: ASTHMA
     Dosage: 18 MCG
     Route: 055
     Dates: start: 20100512
  2. SYMBICORT [Concomitant]
     Indication: ASTHMA
  3. ALDACTONE [Concomitant]
     Indication: FLUID RETENTION
  4. ESTRACE [Concomitant]
     Indication: HORMONE REPLACEMENT THERAPY
  5. SINGULAIR [Concomitant]
     Indication: ASTHMA
  6. ATENOLOL [Concomitant]
     Indication: HYPERTENSION
  7. TRICOR [Concomitant]
     Indication: BLOOD CHOLESTEROL
  8. PREDNISONE [Concomitant]
     Indication: DYSPNOEA
     Dates: start: 20100512
  9. DOXYCYCLINE [Concomitant]
     Indication: DYSPNOEA
     Dates: start: 20100512

REACTIONS (2)
  - COUGH [None]
  - SENSATION OF FOREIGN BODY [None]
